FAERS Safety Report 8048988-4 (Version None)
Quarter: 2012Q1

REPORT INFORMATION
  Report Type: 
  Country: None (occurrence: None)
  Receive Date: 20120117
  Receipt Date: 20120112
  Transmission Date: 20120608
  Serious: Yes (Death)
  Sender: FDA-Public Use
  Company Number: TR-ABBOTT-12P-161-0892479-00

PATIENT
  Sex: Female
  Weight: 55 kg

DRUGS (1)
  1. ZEMPLAR [Suspect]
     Indication: HYPERPARATHYROIDISM
     Route: 042
     Dates: end: 20111001

REACTIONS (1)
  - CORONARY ARTERY EMBOLISM [None]
